FAERS Safety Report 8547488-2 (Version None)
Quarter: 2012Q3

REPORT INFORMATION
  Report Type: 
  Country: None (occurrence: None)
  Receive Date: 20120727
  Receipt Date: 20120709
  Transmission Date: 20120928
  Serious: No
  Sender: FDA-Public Use
  Company Number: US-ASTRAZENECA-2011SE44928

PATIENT
  Age: 60 Year
  Sex: Male

DRUGS (9)
  1. TOPROL-XL [Concomitant]
  2. AMITRIPTYLINE HYDROCHLORIDE [Concomitant]
  3. ACIPHEX [Concomitant]
  4. REMERON [Concomitant]
  5. METHOCARBAMOL [Concomitant]
  6. NEXIUM [Concomitant]
  7. METOPROLOL TARTRATE [Suspect]
     Route: 065
  8. LEXAPRO [Concomitant]
  9. ESOMEPRAZOLE MAGNESIUM [Suspect]
     Route: 065

REACTIONS (6)
  - BLOOD PRESSURE FLUCTUATION [None]
  - ADVERSE EVENT [None]
  - DRUG DOSE OMISSION [None]
  - GASTROOESOPHAGEAL REFLUX DISEASE [None]
  - BLOOD PRESSURE INCREASED [None]
  - DRUG INEFFECTIVE [None]
